FAERS Safety Report 4521085-8 (Version None)
Quarter: 2004Q4

REPORT INFORMATION
  Report Type: 
  Country: None (occurrence: None)
  Receive Date: 20041206
  Receipt Date: 20041124
  Transmission Date: 20050328
  Serious: Yes (Hospitalization)
  Sender: FDA-Public Use
  Company Number: 2004092043

PATIENT
  Age: 62 Year
  Sex: Male

DRUGS (10)
  1. LIPITOR [Suspect]
     Indication: HYPERLIPIDAEMIA
     Dosage: 10 MG (1 IN 1 D); ORAL
     Route: 048
     Dates: start: 20030601, end: 20041101
  2. AZOSEMIDE [Concomitant]
  3. CILNIDIPINE [Concomitant]
  4. ATENOLOL [Concomitant]
  5. NIFEDIPINE [Concomitant]
  6. GLIMEPIRIDE [Concomitant]
  7. VOGLIBOSE [Concomitant]
  8. CILOSTAZOL [Concomitant]
  9. BENZBROMARONE [Concomitant]
  10. VALSARTAN [Concomitant]

REACTIONS (4)
  - BLOOD CREATINE PHOSPHOKINASE INCREASED [None]
  - GENERALISED OEDEMA [None]
  - MYALGIA [None]
  - RHABDOMYOLYSIS [None]
